FAERS Safety Report 7009350 (Version 2)
Quarter: 2014Q2

REPORT INFORMATION
  Report Type: Spontaneous
  Country: US (occurrence: None)
  Receive Date: 20090526
  Receipt Date: 20140424
  Transmission Date: 20141212
  Serious: Yes (Hospitalization, Other)
  Sender: FDA-Public Use
  Company Number: 2009S1004023

PATIENT
  Age: 73 Year
  Sex: Female
  Weight: 59.88 kg

DRUGS (9)
  1. SODIUM PHOSPHATE [Suspect]
     Indication: COLONOSCOPY
     Dosage: PO
     Route: 048
     Dates: start: 200003
  2. PRAZOSIN (PRAZOSIN) [Concomitant]
  3. DILACOR (VERAPAMIL HYDROCHLORIDE) [Concomitant]
  4. PREMARIN (ESTROGENS CONJUGATED) [Concomitant]
  5. COZAAR (LOSARTAN POTASSIUM) (50 MILLIGRAM, TABLETS) (LOSARTAN POTASSIUM) [Concomitant]
  6. OXYBUTYNIN (OXYBUTYNIN) [Concomitant]
  7. HYDROCHLOROTHIAZIDE (HYDROCHLOROTHIAZIDE) [Concomitant]
  8. LANOXIN (DIGOXIN) [Concomitant]
  9. DILTIAZEM (DILTIAZEM) [Concomitant]

REACTIONS (7)
  - Toxicity to various agents [None]
  - Dizziness [None]
  - Palpitations [None]
  - Atrial fibrillation [None]
  - Renal failure acute [None]
  - Hyponatraemia [None]
  - Nephrogenic anaemia [None]
